FAERS Safety Report 23172512 (Version 1)
Quarter: 2023Q4

REPORT INFORMATION
  Report Type: Spontaneous
  Country: US (occurrence: None)
  Receive Date: 20231110
  Receipt Date: 20231110
  Transmission Date: 20240110
  Serious: Yes (Hospitalization)
  Sender: FDA-Public Use
  Company Number: None

PATIENT
  Age: 29 Month
  Sex: Female

DRUGS (1)
  1. VIGABATRIN [Suspect]
     Active Substance: VIGABATRIN
     Indication: Epilepsy
     Dosage: MIX 2 PACKETS IN 20ML WATER. GIVE 12ML BY MOUTH 2 TIMES DAILY FOR 1 WEEK. THEN GIVE 14ML 2 TIMES DAI
     Route: 048
     Dates: start: 202309

REACTIONS (1)
  - Seizure [None]

NARRATIVE: CASE EVENT DATE: 20231028
